FAERS Safety Report 9169829 (Version 2)
Quarter: 2013Q1

REPORT INFORMATION
  Report Type: Spontaneous
  Country: CA (occurrence: CA)
  Receive Date: 20130319
  Receipt Date: 20130329
  Transmission Date: 20140127
  Serious: Yes (Other)
  Sender: FDA-Public Use
  Company Number: CA-AMGEN-CANSP2013017268

PATIENT
  Age: 30 Year
  Sex: Female
  Weight: 61.22 kg

DRUGS (6)
  1. ENBREL [Suspect]
     Indication: PSORIATIC ARTHROPATHY
     Dosage: 50 MG, QWK
     Route: 058
     Dates: start: 20120924
  2. CELEBREX [Concomitant]
     Dosage: UNK
  3. PARIET [Concomitant]
     Dosage: UNK
  4. CLONAZEPAM [Concomitant]
     Dosage: UNK
  5. FENTANYL PCH [Concomitant]
     Dosage: UNK, PATCH
  6. METHOTREXATE [Concomitant]
     Indication: PSORIATIC ARTHROPATHY
     Dosage: 25 MG, QWK
     Route: 058
     Dates: start: 20090213

REACTIONS (1)
  - Melanocytic naevus [Not Recovered/Not Resolved]
